FAERS Safety Report 22009578 (Version 3)
Quarter: 2024Q1

REPORT INFORMATION
  Report Type: Spontaneous
  Country: US (occurrence: US)
  Receive Date: 20230220
  Receipt Date: 20240301
  Transmission Date: 20240410
  Serious: Yes (Other)
  Sender: FDA-Public Use
  Company Number: US-VIIV HEALTHCARE LIMITED-US2023AMR023070

PATIENT
  Age: 57 Year
  Sex: Male

DRUGS (4)
  1. RILPIVIRINE [Suspect]
     Active Substance: RILPIVIRINE
     Indication: Acquired immunodeficiency syndrome
     Dosage: UNK, Q2M (EVERY OTHER MONTH)
     Route: 030
     Dates: start: 201703
  2. RILPIVIRINE [Suspect]
     Active Substance: RILPIVIRINE
     Indication: HIV infection
  3. CABOTEGRAVIR [Suspect]
     Active Substance: CABOTEGRAVIR
     Indication: Acquired immunodeficiency syndrome
     Dosage: UNK, Q2M (EVERY OTHER MONTH)
     Route: 030
     Dates: start: 201703
  4. CABOTEGRAVIR [Suspect]
     Active Substance: CABOTEGRAVIR
     Indication: HIV infection

REACTIONS (6)
  - Loss of consciousness [Recovered/Resolved]
  - Ill-defined disorder [Not Recovered/Not Resolved]
  - Road traffic accident [Unknown]
  - Contusion [Not Recovered/Not Resolved]
  - Papule [Not Recovered/Not Resolved]
  - Influenza [Not Recovered/Not Resolved]

NARRATIVE: CASE EVENT DATE: 20230201
